FAERS Safety Report 8491611-5 (Version None)
Quarter: 2012Q3

REPORT INFORMATION
  Report Type: 
  Country: None (occurrence: None)
  Receive Date: 20120706
  Receipt Date: 20120518
  Transmission Date: 20120928
  Serious: No
  Sender: FDA-Public Use
  Company Number: US-BAYER-2012-048616

PATIENT
  Age: 54 Year
  Sex: Male
  Weight: 82.54 kg

DRUGS (7)
  1. REMICADE [Concomitant]
  2. FOLIC ACID [Concomitant]
  3. LISINOPRIL [Concomitant]
  4. LOVASTATIN [Concomitant]
  5. OMEPRAZOLE [Concomitant]
  6. AZATHIOPRINE [Concomitant]
  7. ALEVE (CAPLET) [Suspect]
     Indication: ARTHRITIS
     Dosage: 2 DF, BID
     Route: 048
     Dates: start: 20120301

REACTIONS (1)
  - NO ADVERSE EVENT [None]
